FAERS Safety Report 12275018 (Version 1)
Quarter: 2016Q2

REPORT INFORMATION
  Report Type: Spontaneous
  Country: US (occurrence: US)
  Receive Date: 20160415
  Receipt Date: 20160415
  Transmission Date: 20160815
  Serious: No
  Sender: FDA-Public Use
  Company Number: US-ALLERGAN-1524057US

PATIENT
  Sex: Male
  Weight: 86.17 kg

DRUGS (1)
  1. LUMIGAN [Suspect]
     Active Substance: BIMATOPROST
     Indication: GLAUCOMA
     Dosage: 2 GTT, QPM
     Route: 047
     Dates: start: 2013

REACTIONS (3)
  - Diplopia [Not Recovered/Not Resolved]
  - Vision blurred [Unknown]
  - Extraocular muscle paresis [Unknown]

NARRATIVE: CASE EVENT DATE: 2013
